FAERS Safety Report 5532771-5 (Version None)
Quarter: 2007Q4

REPORT INFORMATION
  Report Type: 
  Country: None (occurrence: None)
  Receive Date: 20071128
  Receipt Date: 20071116
  Transmission Date: 20080405
  Serious: Yes (Hospitalization)
  Sender: FDA-Public Use
  Company Number: 230402J07USA

PATIENT
  Age: 54 Year
  Sex: Female
  Weight: 97.0698 kg

DRUGS (11)
  1. REBIF [Suspect]
     Indication: MULTIPLE SCLEROSIS
     Dosage: 44 MCG, 3 IN 1 WEEKS, SUBCUTANEOUS
     Route: 058
     Dates: start: 20060927
  2. LEVOTHYROXINE SODIUM [Concomitant]
  3. TRIAMTERENE (TRIAMTERENE) [Concomitant]
  4. LASIX [Concomitant]
  5. ALDACTONE [Concomitant]
  6. KLONOPIN [Concomitant]
  7. EFFEXOR XR [Concomitant]
  8. AMITRIPTYLINE HCL [Concomitant]
  9. NAPROXEN [Concomitant]
  10. MIRAPEX (PRAMIPEXOLE DIHYDROCHORIDE) [Concomitant]
  11. METHADONE HCL [Concomitant]

REACTIONS (1)
  - PNEUMONIA [None]
